FAERS Safety Report 26176599 (Version 1)
Quarter: 2025Q4

REPORT INFORMATION
  Report Type: Spontaneous
  Country: US (occurrence: US)
  Receive Date: 20251218
  Receipt Date: 20251218
  Transmission Date: 20260117
  Serious: No
  Sender: NOVO NORDISK
  Company Number: US-NOVOPROD-1480296

PATIENT
  Sex: Male

DRUGS (1)
  1. LEVEMIR [Suspect]
     Active Substance: INSULIN DETEMIR
     Indication: Diabetes mellitus
     Dosage: 10 IU, QD

REACTIONS (5)
  - Limb injury [Unknown]
  - Localised infection [Unknown]
  - Blood glucose increased [Unknown]
  - Device issue [Unknown]
  - Incorrect dose administered by product [Unknown]
